FAERS Safety Report 6179321-0 (Version None)
Quarter: 2009Q2

REPORT INFORMATION
  Report Type: 
  Country: None (occurrence: None)
  Receive Date: 20090505
  Receipt Date: 20090420
  Transmission Date: 20091009
  Serious: Yes (Other)
  Sender: FDA-Public Use
  Company Number: GB-BAUSCH-2009BL001818

PATIENT
  Age: 16 Month

DRUGS (6)
  1. PREDNISOLONE [Suspect]
     Indication: GRAFT VERSUS HOST DISEASE
  2. CYCLOSPORINE [Suspect]
     Indication: GRAFT VERSUS HOST DISEASE
  3. METHOTREXATE [Suspect]
     Indication: GRAFT VERSUS HOST DISEASE
  4. ANTI-THYMOCYTE GLOBULIN NOS [Suspect]
     Indication: BONE MARROW TRANSPLANT
  5. BUSULPHAN [Suspect]
     Indication: BONE MARROW TRANSPLANT
  6. CYCLOPHOSPHAMIDE [Suspect]
     Indication: BONE MARROW TRANSPLANT

REACTIONS (1)
  - CYTOMEGALOVIRUS INFECTION [None]
